FAERS Safety Report 6646898-8 (Version None)
Quarter: 2010Q1

REPORT INFORMATION
  Report Type: 
  Country: None (occurrence: None)
  Receive Date: 20100323
  Receipt Date: 20100309
  Transmission Date: 20100710
  Serious: Yes (Death)
  Sender: FDA-Public Use
  Company Number: DE-MYLANLABS-2010S1004088

PATIENT
  Age: 65 Year
  Sex: Female
  Weight: 120 kg

DRUGS (5)
  1. METFORMIN HCL [Suspect]
     Indication: TYPE 2 DIABETES MELLITUS
     Route: 048
     Dates: start: 20090101
  2. IBUPROFEN [Suspect]
     Indication: BONE PAIN
     Dosage: 600
     Route: 048
     Dates: start: 20090101
  3. OMEPRAZOLE [Concomitant]
     Indication: PROPHYLAXIS
     Dosage: 20
     Route: 048
     Dates: start: 20090101
  4. PREGABALIN [Concomitant]
     Indication: DIABETIC NEUROPATHY
     Dosage: 150
     Route: 048
     Dates: start: 20090101
  5. LANTUS [Concomitant]
     Indication: TYPE 2 DIABETES MELLITUS
     Route: 058
     Dates: start: 20090101

REACTIONS (1)
  - METABOLIC ACIDOSIS [None]
